FAERS Safety Report 10095081 (Version 1)
Quarter: 2014Q2

REPORT INFORMATION
  Report Type: Spontaneous
  Country: US (occurrence: None)
  Receive Date: 20140421
  Receipt Date: 20140421
  Transmission Date: 20141212
  Serious: No
  Sender: FDA-Public Use
  Company Number: None

PATIENT
  Age: 59 Year
  Sex: Female

DRUGS (1)
  1. XTANDI [Suspect]
     Indication: BREAST CANCER
     Route: 048
     Dates: start: 201308

REACTIONS (3)
  - Hypoaesthesia [None]
  - Paraesthesia [None]
  - Brain neoplasm [None]
